FAERS Safety Report 9358609 (Version 2)
Quarter: 2013Q3

REPORT INFORMATION
  Report Type: Report from Study
  Country: DK (occurrence: DK)
  Receive Date: 20130620
  Receipt Date: 20130712
  Transmission Date: 20140515
  Serious: Yes (Hospitalization)
  Sender: FDA-Public Use
  Company Number: PHHY2013DK060718

PATIENT
  Sex: 0

DRUGS (7)
  1. 5-FLUOROURACIL [Suspect]
     Indication: BREAST CANCER
     Dosage: 850 MG, 1 IN 3 WK
     Route: 042
     Dates: start: 20121218
  2. EPIRUBICIN [Suspect]
     Indication: BREAST CANCER
     Dosage: 153 MG, 1 IN 3 WK
     Route: 042
     Dates: start: 20121218
  3. DOCETAXEL [Suspect]
     Indication: BREAST CANCER
     Dosage: 128 MG, 1 IN 3 WEEK
     Route: 042
     Dates: start: 20130220
  4. PEGFILGRASTIM [Suspect]
     Indication: BREAST CANCER
  5. CYCLOPHOSPHAMIDE [Suspect]
     Indication: BREAST CANCER
     Dosage: 850 MG, 1 IN 3 WK
     Route: 042
     Dates: start: 20121218
  6. PERTUZUMAB [Concomitant]
     Indication: BREAST CANCER
     Route: 042
  7. TRASTUZUMAB [Concomitant]
     Indication: BREAST CANCER
     Dosage: 6 MG/KG, Q3WK
     Route: 042

REACTIONS (3)
  - Musculoskeletal pain [Recovered/Resolved]
  - Pyrexia [Recovered/Resolved]
  - Skin infection [Recovered/Resolved]
